FAERS Safety Report 21995358 (Version 1)
Quarter: 2023Q1

REPORT INFORMATION
  Report Type: Spontaneous
  Country: CA (occurrence: None)
  Receive Date: 20230214
  Receipt Date: 20230214
  Transmission Date: 20230417
  Serious: Yes (Other)
  Sender: FDA-Public Use
  Company Number: None

PATIENT
  Age: 35 Year
  Sex: Female
  Weight: 87.75 kg

DRUGS (1)
  1. INVEGA SUSTENNA [Suspect]
     Active Substance: PALIPERIDONE PALMITATE
     Indication: Schizoaffective disorder

REACTIONS (7)
  - Alcoholism [None]
  - Nicotine dependence [None]
  - Dependence [None]
  - Suicidal ideation [None]
  - Weight increased [None]
  - Fear [None]
  - Feeling abnormal [None]

NARRATIVE: CASE EVENT DATE: 20230211
